FAERS Safety Report 9678792 (Version 4)
Quarter: 2014Q2

REPORT INFORMATION
  Report Type: Spontaneous
  Country: US (occurrence: US)
  Receive Date: 20131108
  Receipt Date: 20140415
  Transmission Date: 20141212
  Serious: Yes (Hospitalization)
  Sender: FDA-Public Use
  Company Number: US-GLAXOSMITHKLINE-A1045069A

PATIENT
  Age: 52 Year
  Sex: Male

DRUGS (4)
  1. VOTRIENT [Suspect]
     Indication: SOFT TISSUE SARCOMA
     Dosage: 800MG PER DAY
     Route: 048
     Dates: start: 20130820
  2. METRONIDAZOLE [Suspect]
     Indication: PRODUCT USED FOR UNKNOWN INDICATION
     Route: 065
  3. GABAPENTIN [Concomitant]
  4. MORPHINE SULFATE [Concomitant]

REACTIONS (6)
  - Vomiting [Recovered/Resolved]
  - Treatment noncompliance [Recovered/Resolved]
  - Adverse event [Recovering/Resolving]
  - Surgery [Recovering/Resolving]
  - Decreased appetite [Recovering/Resolving]
  - Hypoaesthesia oral [Recovering/Resolving]
